FAERS Safety Report 7930421-1 (Version None)
Quarter: 2011Q4

REPORT INFORMATION
  Report Type: 
  Country: None (occurrence: None)
  Receive Date: 20111121
  Receipt Date: 20111108
  Transmission Date: 20120403
  Serious: Yes (Death)
  Sender: FDA-Public Use
  Company Number: US-ROCHE-1007556

PATIENT
  Sex: Male
  Weight: 123.03 kg

DRUGS (6)
  1. PEGASYS [Suspect]
     Indication: PRODUCT USED FOR UNKNOWN INDICATION
     Dates: start: 20110914
  2. FLUOXETINE [Concomitant]
  3. RIBAVIRIN [Suspect]
     Indication: PRODUCT USED FOR UNKNOWN INDICATION
     Dates: start: 20110914
  4. PROZAC [Concomitant]
  5. ZIAC [Concomitant]
     Dosage: 2.5 MG T0 5 MG
  6. TELAPREVIR [Concomitant]
     Indication: HEPATITIS C
     Route: 048
     Dates: start: 20110914

REACTIONS (1)
  - DEATH [None]
